FAERS Safety Report 6829780-2 (Version None)
Quarter: 2010Q3

REPORT INFORMATION
  Report Type: 
  Country: None (occurrence: None)
  Receive Date: 20100709
  Receipt Date: 20080924
  Transmission Date: 20110219
  Serious: Yes (Other)
  Sender: FDA-Public Use
  Company Number: US-PFIZER INC-2007019590

PATIENT
  Sex: Female
  Weight: 72.1 kg

DRUGS (14)
  1. CHANTIX [Suspect]
     Indication: SMOKING CESSATION THERAPY
     Dates: start: 20070301, end: 20070311
  2. PROMETHAZINE [Suspect]
  3. LASIX [Concomitant]
     Indication: ABDOMINAL DISTENSION
  4. ALDACTONE [Concomitant]
     Indication: ABDOMINAL DISTENSION
  5. LYRICA [Concomitant]
     Indication: NEUROPATHY PERIPHERAL
  6. NEXIUM [Concomitant]
     Indication: GASTROOESOPHAGEAL REFLUX DISEASE
  7. LIBRAX [Concomitant]
     Indication: ABDOMINAL DISCOMFORT
  8. LITHIUM CARBONATE [Concomitant]
     Indication: BIPOLAR DISORDER
  9. LEXAPRO [Concomitant]
     Indication: DEPRESSION
  10. SEROQUEL [Concomitant]
     Indication: SLEEP DISORDER
  11. KLONOPIN [Concomitant]
     Indication: SLEEP DISORDER
  12. PROVIGIL [Concomitant]
  13. NASONEX [Concomitant]
  14. CALCITONIN [Concomitant]
     Indication: OSTEOPOROSIS

REACTIONS (16)
  - ABDOMINAL PAIN UPPER [None]
  - DEPRESSION [None]
  - EAR PAIN [None]
  - HEADACHE [None]
  - JOINT STIFFNESS [None]
  - MALAISE [None]
  - MANIA [None]
  - MASTICATION DISORDER [None]
  - NAUSEA [None]
  - NECK PAIN [None]
  - PAIN IN JAW [None]
  - PLATELET COUNT DECREASED [None]
  - PSORIASIS [None]
  - SOMNOLENCE [None]
  - STRESS [None]
  - VOMITING [None]
